FAERS Safety Report 7631302-3 (Version None)
Quarter: 2011Q3

REPORT INFORMATION
  Report Type: 
  Country: None (occurrence: None)
  Receive Date: 20110725
  Receipt Date: 20110715
  Transmission Date: 20111222
  Serious: Yes (Hospitalization)
  Sender: FDA-Public Use
  Company Number: AU-AMGEN-AUSCT2011022710

PATIENT
  Age: 87 Year
  Sex: Male

DRUGS (20)
  1. COLOXYL WITH SENNA [Concomitant]
  2. OSTEOVIT D [Concomitant]
     Dosage: 25 A?G, QD
     Dates: start: 20090901
  3. CYCLOSPORINE [Concomitant]
  4. VINCRISTINE [Concomitant]
  5. DANAZOL [Concomitant]
  6. RAPAMYCIN [Concomitant]
  7. ROMIPLOSTIM [Suspect]
     Indication: IDIOPATHIC THROMBOCYTOPENIC PURPURA
     Dosage: 738 A?G, QWK
     Route: 058
     Dates: start: 20100902
  8. HUMIRA [Concomitant]
  9. INTERFERON [Concomitant]
  10. CYCLOPHOSPHAMIDE [Concomitant]
  11. RITUXIMAB [Concomitant]
  12. ENBREL [Concomitant]
  13. PREDNISOLONE [Concomitant]
     Indication: THROMBOCYTOPENIA
     Dosage: 5 MG, QD
     Route: 048
     Dates: start: 20110428
  14. PANTOPRAZOLE [Concomitant]
     Dosage: 40 MG, QD
     Route: 048
     Dates: start: 20101013
  15. WINRHO [Concomitant]
  16. METHOTREXATE [Concomitant]
  17. TACROLIMUS [Concomitant]
  18. CELLCEPT [Concomitant]
  19. RAPAMUNE [Concomitant]
  20. REMICADE [Concomitant]

REACTIONS (1)
  - EMBOLISM [None]
